FAERS Safety Report 9679995 (Version 1)
Quarter: 2013Q4

REPORT INFORMATION
  Report Type: Spontaneous
  Country: BR (occurrence: BR)
  Receive Date: 20131110
  Receipt Date: 20131110
  Transmission Date: 20140711
  Serious: Yes (Other)
  Sender: FDA-Public Use
  Company Number: PHHY2013BR127162

PATIENT
  Age: 65 Year
  Sex: Female

DRUGS (2)
  1. DIOVAN HCT [Suspect]
     Indication: HYPERTENSION
     Dosage: 1 DF (320/12.5 MG), DAILY
     Route: 048
     Dates: start: 20100920
  2. DIOVAN HCT [Suspect]
     Dosage: 1 DF (320/25 MG), DAILY
     Route: 048

REACTIONS (4)
  - Chest pain [Recovering/Resolving]
  - Bone pain [Recovering/Resolving]
  - Infarction [Recovered/Resolved]
  - Venous occlusion [Recovered/Resolved]
